FAERS Safety Report 7405773-1 (Version None)
Quarter: 2011Q2

REPORT INFORMATION
  Report Type: 
  Country: None (occurrence: None)
  Receive Date: 20110411
  Receipt Date: 20110404
  Transmission Date: 20111010
  Serious: Yes (Other)
  Sender: FDA-Public Use
  Company Number: FR-PFIZER INC-2011075108

PATIENT
  Age: 58 Year
  Sex: Male

DRUGS (9)
  1. TRAVATAN [Concomitant]
     Dosage: ONE IN THE EVENING
  2. ACETAMINOPHEN [Suspect]
     Dosage: UNK
     Route: 048
     Dates: start: 20101201, end: 20110121
  3. PREVISCAN [Suspect]
     Dosage: 15 MG, 1X/DAY
     Route: 048
     Dates: start: 20101231, end: 20110123
  4. TAHOR [Suspect]
     Dosage: 40 MG, 1X/DAY
     Route: 048
     Dates: start: 20101222, end: 20110122
  5. IMOVANE [Concomitant]
     Dosage: 7.5 MG, 1X/DAY
     Dates: start: 20101216
  6. DEPAKENE [Concomitant]
     Dosage: 1 G, 3X/DAY
     Route: 048
     Dates: start: 20000101
  7. CARDENSIEL [Concomitant]
     Dosage: 1.25 MG, 2X/DAY
     Route: 048
     Dates: start: 20101222
  8. SPIRIVA [Concomitant]
     Dosage: ONE IN THE EVENING
  9. NEXIUM [Suspect]
     Dosage: 20 MG, 1X/DAY
     Route: 048
     Dates: start: 20101221, end: 20110121

REACTIONS (1)
  - NEUTROPENIA [None]
